FAERS Safety Report 7004266-3 (Version None)
Quarter: 2010Q3

REPORT INFORMATION
  Report Type: 
  Country: None (occurrence: None)
  Receive Date: 20100921
  Receipt Date: 20100914
  Transmission Date: 20110219
  Serious: Yes (Other)
  Sender: FDA-Public Use
  Company Number: US-ASTRAZENECA-2007UW19467

PATIENT
  Age: 46 Year
  Sex: Female
  Weight: 78 kg

DRUGS (32)
  1. SEROQUEL [Suspect]
     Indication: BIPOLAR DISORDER
     Dosage: 50MG-300MG
     Route: 048
     Dates: start: 19980101, end: 20040101
  2. SEROQUEL [Suspect]
     Indication: SCHIZOPHRENIA
     Dosage: 50MG-300MG
     Route: 048
     Dates: start: 19980101, end: 20040101
  3. SEROQUEL [Suspect]
     Indication: DEPRESSION
     Dosage: 50MG-300MG
     Route: 048
     Dates: start: 19980101, end: 20040101
  4. SEROQUEL [Suspect]
     Indication: ANXIETY
     Dosage: 50MG-300MG
     Route: 048
     Dates: start: 19980101, end: 20040101
  5. SEROQUEL [Suspect]
     Dosage: 400-800 MG
     Route: 048
     Dates: start: 20051123, end: 20070802
  6. SEROQUEL [Suspect]
     Dosage: 400-800 MG
     Route: 048
     Dates: start: 20051123, end: 20070802
  7. SEROQUEL [Suspect]
     Dosage: 400-800 MG
     Route: 048
     Dates: start: 20051123, end: 20070802
  8. SEROQUEL [Suspect]
     Dosage: 400-800 MG
     Route: 048
     Dates: start: 20051123, end: 20070802
  9. TOPAMAX [Suspect]
     Indication: AFFECTIVE DISORDER
     Dosage: 150 MG, DAILY
     Route: 065
     Dates: start: 20051221
  10. TOPAMAX [Suspect]
     Indication: MIGRAINE
     Dosage: 150 MG, DAILY
     Route: 065
     Dates: start: 20051221
  11. RISPERDAL [Concomitant]
  12. ZYPREXA [Concomitant]
     Indication: DEPRESSION
     Dates: start: 20090101
  13. HYDROCHLOROTHIAZIDE [Concomitant]
     Dates: start: 20050314
  14. MEPERIDINE HCL [Concomitant]
     Dates: start: 20051101
  15. HYDROXYZINE PAM [Concomitant]
     Dates: start: 20051123
  16. AMBIEN [Concomitant]
     Dates: start: 20051123
  17. PROTONIX [Concomitant]
     Dates: start: 20051123
  18. BENICAR [Concomitant]
     Indication: HYPERTENSION
     Dosage: 40 MG, HALF TABLET
     Dates: start: 20051201
  19. GLUCOPHAGE [Concomitant]
     Dosage: 500 MG, ONCE OR TWICE DAILY
     Dates: start: 20051201
  20. TRILEPTAL [Concomitant]
     Indication: AFFECTIVE DISORDER
     Dosage: 300-600 MG
     Dates: start: 20051201
  21. KLONOPIN [Concomitant]
     Indication: AFFECTIVE DISORDER
     Dosage: 0.5-1 MG, AT NIGHT
     Dates: start: 20051201
  22. KLONOPIN [Concomitant]
     Indication: RESTLESS LEGS SYNDROME
     Dosage: 0.5-1 MG, AT NIGHT
     Dates: start: 20051201
  23. BENZTROPINE MES [Concomitant]
     Dates: start: 20051221
  24. LEXAPRO [Concomitant]
     Indication: AFFECTIVE DISORDER
     Dosage: 5-200 MG, DAILY
     Dates: start: 20060110
  25. OXYCODONE AND ACETAMINOPHEN [Concomitant]
     Dosage: 5
     Dates: start: 20060320
  26. ABILIFY [Concomitant]
     Indication: AFFECTIVE DISORDER
     Dosage: 5-10 MG, DAILY
     Dates: start: 20060414, end: 20070222
  27. NAPROXEN [Concomitant]
     Dates: start: 20060731
  28. TRAZODONE HCL [Concomitant]
     Dates: start: 20061219
  29. INDOMETHACIN [Concomitant]
     Dosage: 25 MG, ONE OR TWO, THREE TIMES A DAY
     Route: 048
     Dates: start: 20060731
  30. PROCHLORPERAZINE [Concomitant]
     Dosage: 1-5
     Dates: start: 20060320
  31. GEODON [Concomitant]
  32. HALDOL [Concomitant]

REACTIONS (7)
  - DIABETES MELLITUS INADEQUATE CONTROL [None]
  - DIABETIC NEUROPATHY [None]
  - MUSCLE DISORDER [None]
  - MUSCULAR WEAKNESS [None]
  - NERVE INJURY [None]
  - NEUROPATHY PERIPHERAL [None]
  - TYPE 2 DIABETES MELLITUS [None]
